FAERS Safety Report 11242939 (Version 2)
Quarter: 2016Q3

REPORT INFORMATION
  Report Type: Report from Study
  Country: PT (occurrence: PT)
  Receive Date: 20150707
  Receipt Date: 20160818
  Transmission Date: 20161109
  Serious: Yes (Other)
  Sender: FDA-Public Use
  Company Number: PHHY2015PT035415

PATIENT
  Age: 27 Year
  Sex: Female

DRUGS (1)
  1. GILENYA [Suspect]
     Active Substance: FINGOLIMOD HYDROCHLORIDE
     Indication: MULTIPLE SCLEROSIS
     Dosage: 0.5 MG, QD
     Route: 048
     Dates: start: 20140528

REACTIONS (14)
  - Hypoaesthesia oral [Recovered/Resolved]
  - Lymphocyte count decreased [Not Recovered/Not Resolved]
  - Muscular weakness [Recovering/Resolving]
  - Oedema [Unknown]
  - Urinary incontinence [Recovered/Resolved]
  - Vitamin D decreased [Not Recovered/Not Resolved]
  - Blood triglycerides increased [Not Recovered/Not Resolved]
  - Dysgeusia [Unknown]
  - Blood cholesterol increased [Not Recovered/Not Resolved]
  - Musculoskeletal pain [Recovering/Resolving]
  - Multiple sclerosis relapse [Recovering/Resolving]
  - White blood cell count decreased [Not Recovered/Not Resolved]
  - Urinary tract infection [Recovered/Resolved]
  - Insomnia [Recovering/Resolving]

NARRATIVE: CASE EVENT DATE: 201411
